FAERS Safety Report 16286176 (Version 1)
Quarter: 2019Q2

REPORT INFORMATION
  Report Type: Spontaneous
  Country: US (occurrence: US)
  Receive Date: 20190508
  Receipt Date: 20190508
  Transmission Date: 20190711
  Serious: No
  Sender: FDA-Public Use
  Company Number: US-PFIZER INC-2019190289

PATIENT
  Age: 69 Year
  Sex: Male

DRUGS (2)
  1. LYRICA [Suspect]
     Active Substance: PREGABALIN
     Indication: NEUROPATHY PERIPHERAL
     Dosage: 50 MG, 3X/DAY (50 MG, ONE CAPSULE EVERY 8 HOURS)
  2. DONEPEZIL. [Concomitant]
     Active Substance: DONEPEZIL
     Dosage: 10 MG, 1X/DAY

REACTIONS (4)
  - Drug ineffective [Unknown]
  - Product use issue [Unknown]
  - Insomnia [Unknown]
  - Off label use [Unknown]
